FAERS Safety Report 11349815 (Version 1)
Quarter: 2015Q3

REPORT INFORMATION
  Report Type: Spontaneous
  Country: US (occurrence: None)
  Receive Date: 20150709
  Receipt Date: 20150709
  Transmission Date: 20151125
  Serious: Yes (Hospitalization)
  Sender: FDA-Public Use
  Company Number: PHEH2014US021418

PATIENT
  Age: 72 Year
  Sex: Female
  Weight: 70.5 kg

DRUGS (1)
  1. GLEEVEC [Suspect]
     Active Substance: IMATINIB MESYLATE
     Indication: CHRONIC MYELOID LEUKAEMIA
     Dosage: 400 MG (1 TABLET), DAILY QD

REACTIONS (6)
  - Diverticulum [None]
  - Intestinal perforation [None]
  - Nausea [None]
  - Retching [None]
  - Inflammatory bowel disease [None]
  - Vomiting [None]

NARRATIVE: CASE EVENT DATE: 20141103
